FAERS Safety Report 19823965 (Version 1)
Quarter: 2021Q3

REPORT INFORMATION
  Report Type: Other
  Country: CN (occurrence: CN)
  Receive Date: 20210914
  Receipt Date: 20210914
  Transmission Date: 20211014
  Serious: Yes (Hospitalization, Other)
  Sender: FDA-Public Use
  Company Number: CN-ROCHE-2369642

PATIENT
  Age: 60 Year
  Sex: Male
  Weight: 60 kg

DRUGS (1)
  1. AVASTIN [Suspect]
     Active Substance: BEVACIZUMAB
     Indication: GASTROINTESTINAL CARCINOMA
     Route: 041
     Dates: start: 20170929

REACTIONS (8)
  - Oedema peripheral [Unknown]
  - Dizziness [Recovering/Resolving]
  - Cough [Unknown]
  - Nasopharyngitis [Unknown]
  - Nodule [Unknown]
  - Hypertension [Unknown]
  - Cerebral infarction [Recovering/Resolving]
  - Cerebral thrombosis [Unknown]

NARRATIVE: CASE EVENT DATE: 202107
